FAERS Safety Report 9384300 (Version 1)
Quarter: 2013Q3

REPORT INFORMATION
  Report Type: Spontaneous
  Country: US (occurrence: US)
  Receive Date: 20130705
  Receipt Date: 20130705
  Transmission Date: 20140515
  Serious: Yes (Other)
  Sender: FDA-Public Use
  Company Number: US-ROCHE-1243831

PATIENT
  Age: 45 Year
  Sex: Female

DRUGS (2)
  1. BEVACIZUMAB [Suspect]
     Indication: GLIOMA
     Route: 065
  2. IRINOTECAN [Suspect]
     Indication: GLIOMA
     Route: 065

REACTIONS (4)
  - Aneurysm [Unknown]
  - Subarachnoid haemorrhage [Unknown]
  - Hydrocephalus [Unknown]
  - Ischaemic stroke [Unknown]
